FAERS Safety Report 18582319 (Version 1)
Quarter: 2020Q4

REPORT INFORMATION
  Report Type: Spontaneous
  Country: US (occurrence: US)
  Receive Date: 20201204
  Receipt Date: 20201204
  Transmission Date: 20210114
  Serious: Yes (Death)
  Sender: FDA-Public Use
  Company Number: None

PATIENT
  Sex: Male

DRUGS (3)
  1. PROLIA [Suspect]
     Active Substance: DENOSUMAB
     Indication: OSTEOPOROSIS
     Dosage: ?          OTHER FREQUENCY:EVERY 6 MONTHS;?
     Route: 058
     Dates: start: 20180831
  2. ASACOL, LISINOPRIL, LIVALO [Concomitant]
  3. XARELTO, NADOLOL, URSODIOL, COQ10, TRAMADOL, MULTIVITAMIN, CALCIUM [Concomitant]

REACTIONS (1)
  - Death [None]
